FAERS Safety Report 7701966-4 (Version None)
Quarter: 2011Q3

REPORT INFORMATION
  Report Type: 
  Country: None (occurrence: None)
  Receive Date: 20110822
  Receipt Date: 20110810
  Transmission Date: 20111222
  Serious: Yes (Other)
  Sender: FDA-Public Use
  Company Number: PHHY2011AU68609

PATIENT
  Sex: Male

DRUGS (4)
  1. GLEEVEC [Suspect]
     Indication: CHRONIC MYELOID LEUKAEMIA
     Dosage: 400 MG
     Route: 048
     Dates: start: 20101001, end: 20110601
  2. LASIX [Concomitant]
     Dosage: 20 MG, UNK
  3. ZOCOR [Concomitant]
     Dosage: 40 UG, UNK
  4. ASPIRIN [Concomitant]
     Dosage: 100 MG, UNK

REACTIONS (4)
  - HEARING IMPAIRED [None]
  - INTERSTITIAL LUNG DISEASE [None]
  - LOWER RESPIRATORY TRACT INFECTION [None]
  - DYSPNOEA [None]
